FAERS Safety Report 4466663-X (Version None)
Quarter: 2004Q4

REPORT INFORMATION
  Report Type: 
  Country: None (occurrence: None)
  Receive Date: 20041006
  Receipt Date: 20040924
  Transmission Date: 20050328
  Serious: Yes (Other)
  Sender: FDA-Public Use
  Company Number: US-ROCHE-381583

PATIENT
  Age: 41 Year
  Sex: Female

DRUGS (2)
  1. PEGASYS [Suspect]
     Indication: HEPATITIS C
     Dosage: ROUTE: INJ. COMPLETED THE 48 WEEKS OF TREATMENT
     Route: 050
     Dates: start: 20031010, end: 20040909
  2. COPEGUS [Suspect]
     Indication: HEPATITIS C
     Dosage: COMPLETED THE 48 WEEKS OF TREATMENT
     Route: 048
     Dates: start: 20031010, end: 20040909

REACTIONS (10)
  - ANTINUCLEAR ANTIBODY POSITIVE [None]
  - ANXIETY [None]
  - COUGH [None]
  - HAEMOGLOBIN DECREASED [None]
  - HOARSENESS [None]
  - KERATOCONJUNCTIVITIS SICCA [None]
  - PANIC ATTACK [None]
  - SKIN HYPERPIGMENTATION [None]
  - VOCAL CORD THICKENING [None]
  - WHITE BLOOD CELL COUNT DECREASED [None]
